FAERS Safety Report 8495032-0 (Version None)
Quarter: 2012Q3

REPORT INFORMATION
  Report Type: 
  Country: None (occurrence: None)
  Receive Date: 20120709
  Receipt Date: 20120702
  Transmission Date: 20120928
  Serious: Yes (Hospitalization)
  Sender: FDA-Public Use
  Company Number: PHHO2012JP002456

PATIENT
  Sex: Male
  Weight: 59 kg

DRUGS (20)
  1. PLAVIX [Concomitant]
     Indication: THROMBOSIS PROPHYLAXIS
     Dosage: 75 MG, UNK
     Route: 048
     Dates: start: 20090422
  2. JANUVIA [Concomitant]
     Indication: DIABETES MELLITUS
     Dosage: 100 MG, UNK
     Route: 048
     Dates: start: 20090422
  3. DIART [Concomitant]
     Indication: POLYURIA
     Dosage: 120 MG, UNK
     Route: 048
     Dates: start: 20090422
  4. DIART [Concomitant]
     Dosage: 60 MG, QD
     Route: 048
     Dates: start: 20120519
  5. TORSEMIDE [Concomitant]
     Dosage: 4 MG, UNK
     Route: 048
  6. CARVEDILOL [Concomitant]
     Indication: CARDIAC FAILURE CHRONIC
     Dosage: 1.25 MG, UNK
     Route: 048
  7. TANADOPA [Concomitant]
     Indication: CARDIAC FAILURE CHRONIC
     Dosage: 2 G, UNK
     Route: 048
     Dates: start: 20120605
  8. ALISKIREN [Suspect]
     Indication: CARDIAC FAILURE
     Dosage: UNK
     Route: 048
     Dates: end: 20120110
  9. ASPIRIN [Concomitant]
     Indication: THROMBOSIS PROPHYLAXIS
     Dosage: 50 MG, UNK
     Route: 048
     Dates: start: 20090422
  10. UNASYN [Concomitant]
     Dosage: 750 MG, UNK
     Route: 048
  11. TRICHLORMETHIAZIDE [Concomitant]
     Indication: POLYURIA
     Dosage: 1 MG, UNK
     Route: 048
     Dates: start: 20120613
  12. SLOW-K [Concomitant]
     Dosage: 300 MG, UNK
     Route: 048
     Dates: start: 20120619
  13. ENALAPRIL MALEATE [Suspect]
     Indication: CARDIAC FAILURE
     Dosage: UNK
     Dates: end: 20120110
  14. ALDACTONE [Concomitant]
     Indication: POLYURIA
     Dosage: 25 MG, UNK
     Route: 048
     Dates: start: 20090422
  15. ALLORINE [Concomitant]
     Indication: GOUT
     Dosage: 25 MG, UNK
     Route: 048
     Dates: start: 20090422
  16. MAGNESIUM OXIDE [Concomitant]
     Indication: CONSTIPATION PROPHYLAXIS
     Dosage: 990 MG, UNK
     Route: 048
     Dates: start: 20120301
  17. LANSOPRAZOLE [Concomitant]
     Indication: PROPHYLAXIS AGAINST GASTROINTESTINAL ULCER
     Dosage: 15 MG, UNK
     Route: 048
     Dates: start: 20090422
  18. LASIX [Concomitant]
     Dosage: 20 MG, UNK
     Route: 048
  19. GLIMEPIRIDE [Concomitant]
     Indication: DIABETES MELLITUS
     Dosage: 1 MG, UNK
     Route: 048
     Dates: start: 20090422
  20. TETUCUR [Concomitant]
     Dosage: 300 MG, UNK
     Route: 048
     Dates: start: 20120621

REACTIONS (1)
  - CARDIAC FAILURE [None]
